FAERS Safety Report 24234034 (Version 2)
Quarter: 2025Q2

REPORT INFORMATION
  Report Type: Spontaneous
  Country: US (occurrence: US)
  Receive Date: 20240821
  Receipt Date: 20250514
  Transmission Date: 20250716
  Serious: Yes (Other)
  Sender: EVOFEM
  Company Number: US-EVOFEM BIOSCIENCES, INC.-2022-EVO-US000022

PATIENT

DRUGS (1)
  1. PHEXXI [Suspect]
     Active Substance: CITRIC ACID MONOHYDRATE\LACTIC ACID, L-\POTASSIUM BITARTRATE
     Indication: Product used for unknown indication
     Route: 065

REACTIONS (4)
  - Haemorrhage in pregnancy [Recovered/Resolved]
  - Pregnancy [Recovered/Resolved]
  - Drug ineffective [Unknown]
  - Subchorionic haemorrhage [Recovered/Resolved]
